FAERS Safety Report 9183538 (Version 1)
Quarter: 2013Q1

REPORT INFORMATION
  Report Type: Spontaneous
  Country: US (occurrence: US)
  Receive Date: 20130322
  Receipt Date: 20130322
  Transmission Date: 20140127
  Serious: No
  Sender: FDA-Public Use
  Company Number: US-BRISTOL-MYERS SQUIBB COMPANY-16443970

PATIENT
  Age: 68 Year
  Sex: Male

DRUGS (7)
  1. ERBITUX [Suspect]
     Indication: LUNG NEOPLASM MALIGNANT
     Dosage: INF:6
  2. TAXOL [Concomitant]
  3. CARBOPLATIN [Concomitant]
  4. ALLEGRA [Concomitant]
  5. DIAZEPAM [Concomitant]
  6. LISINOPRIL [Concomitant]
  7. CLONIDINE [Concomitant]

REACTIONS (3)
  - Rash pustular [Recovering/Resolving]
  - Dry skin [Unknown]
  - Dry eye [Unknown]
